FAERS Safety Report 12130166 (Version 4)
Quarter: 2016Q1

REPORT INFORMATION
  Report Type: Spontaneous
  Country: JP (occurrence: JP)
  Receive Date: 20160229
  Receipt Date: 20160322
  Transmission Date: 20160526
  Serious: Yes (Hospitalization, Other)
  Sender: FDA-Public Use
  Company Number: JP-009507513-1602JPN009271

PATIENT
  Age: 76 Year
  Sex: Male

DRUGS (3)
  1. BI SIFROL [Concomitant]
     Active Substance: PRAMIPEXOLE
     Dosage: 0.125 MG IN DAYTIME, 0.125 MG IN EVENING AND 0.25 MG WHEN GOING TO BED
     Route: 048
  2. BELSOMRA [Suspect]
     Active Substance: SUVOREXANT
     Dosage: 15 MG, UNK
     Route: 048
  3. METHYCOBAL [Concomitant]
     Active Substance: METHYLCOBALAMIN
     Dosage: 3 DOSAGE FORM, TID
     Route: 048

REACTIONS (3)
  - Drug ineffective [Unknown]
  - Middle insomnia [Unknown]
  - Colon cancer [Unknown]
